FAERS Safety Report 10232748 (Version 1)
Quarter: 2014Q2

REPORT INFORMATION
  Report Type: Spontaneous
  Country: US (occurrence: None)
  Receive Date: 20140506
  Receipt Date: 20140506
  Transmission Date: 20141212
  Serious: Yes (Hospitalization)
  Sender: FDA-Public Use
  Company Number: 1244768

PATIENT
  Age: 70 Year
  Sex: Male
  Weight: 68.04 kg

DRUGS (2)
  1. AVASTIN (BEVACIZUMAB) (INFUSION, SOLUTION) [Suspect]
     Indication: METASTATIC RENAL CELL CARCINOMA
     Dosage: 10 MG/KG,1 IN 2 WK
     Route: 042
     Dates: start: 20121105, end: 20130628
  2. SUTENT (SUNITINIB MALATE) [Suspect]
     Indication: METASTATIC RENAL CELL CARCINOMA
     Route: 048
     Dates: start: 20120909, end: 20130628

REACTIONS (1)
  - Large intestine perforation [None]
